FAERS Safety Report 18953031 (Version 2)
Quarter: 2022Q1

REPORT INFORMATION
  Report Type: Spontaneous
  Country: US (occurrence: US)
  Receive Date: 20210301
  Receipt Date: 20220204
  Transmission Date: 20220423
  Serious: Yes (Life-Threatening, Hospitalization, Disabling)
  Sender: FDA-Public Use
  Company Number: US-BAUSCH-BL-2021-006558

PATIENT
  Age: 20 Year
  Sex: Male
  Weight: 51.5 kg

DRUGS (2)
  1. WELLBUTRIN [Suspect]
     Active Substance: BUPROPION HYDROCHLORIDE
     Indication: Depression
     Dosage: 1 WEEK PRIOR TO PRESUMED SEIZURE, A TOTAL OF ROUGHLY 1 WEEK
     Route: 048
  2. PAROXETINE [Concomitant]
     Active Substance: PAROXETINE
     Indication: Depression
     Dosage: UNKNOWN DOSE

REACTIONS (1)
  - Reversible cerebral vasoconstriction syndrome [Recovering/Resolving]
